FAERS Safety Report 7596215-4 (Version None)
Quarter: 2011Q3

REPORT INFORMATION
  Report Type: 
  Country: None (occurrence: None)
  Receive Date: 20110707
  Receipt Date: 20110627
  Transmission Date: 20111222
  Serious: Yes (Hospitalization)
  Sender: FDA-Public Use
  Company Number: FR-ELI_LILLY_AND_COMPANY-FR201106001504

PATIENT
  Sex: Male

DRUGS (9)
  1. TRILEPTAL [Concomitant]
     Dosage: 2*300MG DAILY
  2. FOLIC ACID [Concomitant]
  3. PREDNISOLONE [Concomitant]
     Dosage: 20MG
  4. NEULASTA [Concomitant]
     Dosage: 6 MG, UNK
     Route: 042
     Dates: start: 20100910
  5. BISOPROLOL FUMARATE [Concomitant]
     Dosage: 2.5 MG, DAILY
  6. NEXIUM [Concomitant]
     Dosage: 40 MG, QD
  7. CLONAZEPAM [Concomitant]
     Dosage: 5 DROPS
  8. RAMIPRIL [Concomitant]
     Dosage: 2.5 MG, QD
  9. ALIMTA [Suspect]
     Dosage: 400 MG/M2, UNK
     Dates: start: 20100909

REACTIONS (3)
  - THROMBOCYTOPENIA [None]
  - SEGMENTED HYALINISING VASCULITIS [None]
  - CYTOLYTIC HEPATITIS [None]
